FAERS Safety Report 17147831 (Version 4)
Quarter: 2020Q2

REPORT INFORMATION
  Report Type: Spontaneous
  Country: FR (occurrence: FR)
  Receive Date: 20191212
  Receipt Date: 20200608
  Transmission Date: 20200713
  Serious: Yes (Death, Hospitalization, Other)
  Sender: FDA-Public Use
  Company Number: FR-BAUSCH-BL-2019-064639

PATIENT
  Age: 78 Year
  Sex: Female
  Weight: 100 kg

DRUGS (28)
  1. LANTUS [Suspect]
     Active Substance: INSULIN GLARGINE
     Indication: TYPE 2 DIABETES MELLITUS
     Route: 058
  2. LORMETAZEPAM [Suspect]
     Active Substance: LORMETAZEPAM
     Route: 048
  3. ZOPICLONE [Suspect]
     Active Substance: ZOPICLONE
     Dosage: 1 PATCH/DAY
     Route: 023
     Dates: end: 20191114
  4. SKENAN [Suspect]
     Active Substance: MORPHINE SULFATE
     Indication: PRODUCT USED FOR UNKNOWN INDICATION
     Route: 048
  5. PARACETAMOL [Suspect]
     Active Substance: ACETAMINOPHEN
     Indication: PRODUCT USED FOR UNKNOWN INDICATION
     Route: 048
  6. OMEPRAZOLE. [Suspect]
     Active Substance: OMEPRAZOLE
     Indication: RESTLESS LEGS SYNDROME
     Route: 048
  7. ACIDE FOLIQUE [Suspect]
     Active Substance: FOLIC ACID
     Dosage: DOSE REDUCED
     Route: 065
  8. LORMETAZEPAM [Suspect]
     Active Substance: LORMETAZEPAM
     Indication: PRODUCT USED FOR UNKNOWN INDICATION
     Route: 048
  9. ROPINIROLE BASE [Suspect]
     Active Substance: ROPINIROLE HYDROCHLORIDE
     Indication: PRODUCT USED FOR UNKNOWN INDICATION
     Route: 048
  10. DICLOFENAC [Suspect]
     Active Substance: DICLOFENAC
     Route: 048
     Dates: end: 20191112
  11. RAMIPRIL. [Suspect]
     Active Substance: RAMIPRIL
     Indication: PRODUCT USED FOR UNKNOWN INDICATION
     Route: 048
  12. RAMIPRIL. [Suspect]
     Active Substance: RAMIPRIL
     Route: 048
  13. ZOPICLONE [Suspect]
     Active Substance: ZOPICLONE
     Indication: PRODUCT USED FOR UNKNOWN INDICATION
     Dosage: 1 PATCH/DAY
     Route: 023
     Dates: end: 20191114
  14. DIAFUSOR [Suspect]
     Active Substance: NITROGLYCERIN
     Indication: PRODUCT USED FOR UNKNOWN INDICATION
     Dosage: 15 MG / 24 HOURS,?TRANSDERMAL PATCH
     Route: 048
     Dates: end: 20191112
  15. LANTUS [Suspect]
     Active Substance: INSULIN GLARGINE
     Route: 058
  16. FUROSEMIDE. [Suspect]
     Active Substance: FUROSEMIDE
     Indication: PRODUCT USED FOR UNKNOWN INDICATION
     Route: 048
  17. CEFTRIAXONE BASE [Suspect]
     Active Substance: CEFTRIAXONE
     Indication: PRODUCT USED FOR UNKNOWN INDICATION
     Route: 065
  18. METFORMINE [Suspect]
     Active Substance: METFORMIN HYDROCHLORIDE
     Indication: TYPE 2 DIABETES MELLITUS
     Route: 048
     Dates: end: 20191114
  19. DICLOFENAC [Suspect]
     Active Substance: DICLOFENAC
     Indication: PRODUCT USED FOR UNKNOWN INDICATION
     Route: 048
     Dates: end: 20191112
  20. ACTISKENAN [Suspect]
     Active Substance: MORPHINE SULFATE
     Indication: PRODUCT USED FOR UNKNOWN INDICATION
     Route: 048
  21. MOLSIDOMINE [Suspect]
     Active Substance: MOLSIDOMINE
     Indication: PRODUCT USED FOR UNKNOWN INDICATION
     Route: 048
  22. BETAXOLOL BASE [Suspect]
     Active Substance: BETAXOLOL
     Indication: PRODUCT USED FOR UNKNOWN INDICATION
     Route: 048
     Dates: end: 20191114
  23. FUROSEMIDE. [Suspect]
     Active Substance: FUROSEMIDE
     Route: 048
  24. OMEPRAZOLE. [Suspect]
     Active Substance: OMEPRAZOLE
     Route: 048
  25. ACIDE FOLIQUE [Suspect]
     Active Substance: FOLIC ACID
     Indication: PRODUCT USED FOR UNKNOWN INDICATION
     Route: 048
  26. MOLSIDOMINE [Suspect]
     Active Substance: MOLSIDOMINE
     Route: 048
  27. PARACETAMOL [Suspect]
     Active Substance: ACETAMINOPHEN
     Route: 048
  28. LOXEN L P [Suspect]
     Active Substance: NICARDIPINE HYDROCHLORIDE
     Indication: HYPERTENSION
     Route: 048

REACTIONS (1)
  - Acquired haemophilia [Fatal]

NARRATIVE: CASE EVENT DATE: 20191010
